FAERS Safety Report 17879467 (Version 1)
Quarter: 2020Q2

REPORT INFORMATION
  Report Type: Spontaneous
  Country: US (occurrence: US)
  Receive Date: 20200609
  Receipt Date: 20200609
  Transmission Date: 20200714
  Serious: Yes (Hospitalization)
  Sender: FDA-Public Use
  Company Number: None

PATIENT
  Age: 33 Year
  Sex: Female
  Weight: 211.5 kg

DRUGS (12)
  1. PREGABALIN. [Concomitant]
     Active Substance: PREGABALIN
  2. VIBERZI [Concomitant]
     Active Substance: ELUXADOLINE
  3. CHLORTHALIDONE. [Concomitant]
     Active Substance: CHLORTHALIDONE
  4. METFORMIN ER [Concomitant]
     Active Substance: METFORMIN HYDROCHLORIDE
  5. METHYLDOPA. [Concomitant]
     Active Substance: METHYLDOPA
  6. MONTELUKAST [Concomitant]
     Active Substance: MONTELUKAST SODIUM
  7. BYDUREON [Suspect]
     Active Substance: EXENATIDE
     Indication: TYPE 2 DIABETES MELLITUS
     Dosage: OTHER ROUTE:INJECTED INTO MY LEFT STOMACH?
     Dates: start: 20200522, end: 20200603
  8. CELECOXIB. [Concomitant]
     Active Substance: CELECOXIB
  9. NEXIUM [Concomitant]
     Active Substance: ESOMEPRAZOLE MAGNESIUM
  10. EQUATE MIGRAINE [Concomitant]
  11. MAGNESIUM [Concomitant]
     Active Substance: MAGNESIUM
  12. BENADRYL [Concomitant]
     Active Substance: DIPHENHYDRAMINE HYDROCHLORIDE

REACTIONS (4)
  - Urticaria [None]
  - Pruritus [None]
  - Loss of personal independence in daily activities [None]
  - Swelling [None]

NARRATIVE: CASE EVENT DATE: 20200603
